FAERS Safety Report 15813550 (Version 1)
Quarter: 2019Q1

REPORT INFORMATION
  Report Type: Spontaneous
  Country: US (occurrence: US)
  Receive Date: 20190111
  Receipt Date: 20190111
  Transmission Date: 20190417
  Serious: No
  Sender: FDA-Public Use
  Company Number: US-ALLERGAN-1825608US

PATIENT
  Sex: Female

DRUGS (2)
  1. TAZORAC [Concomitant]
     Active Substance: TAZAROTENE
     Dosage: THREE TIMES WEEKLY IN THE EVENING
     Route: 061
  2. ACZONE [Suspect]
     Active Substance: DAPSONE
     Indication: ACNE
     Dosage: UNK, QD
     Route: 061
     Dates: start: 20180426

REACTIONS (2)
  - Product quality issue [Unknown]
  - Acne [Unknown]
